FAERS Safety Report 14689244 (Version 1)
Quarter: 2018Q1

REPORT INFORMATION
  Report Type: Spontaneous
  Country: US (occurrence: US)
  Receive Date: 20180327
  Receipt Date: 20180327
  Transmission Date: 20180509
  Serious: Yes (Hospitalization)
  Sender: FDA-Public Use
  Company Number: None

PATIENT
  Age: 50 Year
  Sex: Female
  Weight: 53.55 kg

DRUGS (1)
  1. ALENDRONATE [Suspect]
     Active Substance: ALENDRONATE SODIUM
     Indication: OSTEOPOROSIS
     Dosage: ?          QUANTITY:1 TABLET(S);OTHER FREQUENCY:ONCE A WEEK;?
     Route: 048
     Dates: start: 20180203, end: 20180310

REACTIONS (3)
  - Myalgia [None]
  - Gait disturbance [None]
  - Pain in extremity [None]

NARRATIVE: CASE EVENT DATE: 20180315
